FAERS Safety Report 20215974 (Version 1)
Quarter: 2021Q4

REPORT INFORMATION
  Report Type: Spontaneous
  Country: JP (occurrence: JP)
  Receive Date: 20211222
  Receipt Date: 20211222
  Transmission Date: 20220304
  Serious: Yes (Other)
  Sender: FDA-Public Use
  Company Number: JP-AMGEN-JPNSP2021198918

PATIENT

DRUGS (1)
  1. REPATHA [Suspect]
     Active Substance: EVOLOCUMAB
     Indication: Low density lipoprotein increased
     Dosage: UNK
     Route: 058

REACTIONS (4)
  - Angina pectoris [Unknown]
  - Diabetes mellitus [Unknown]
  - Low density lipoprotein decreased [Unknown]
  - Hypertension [Unknown]
